FAERS Safety Report 22046710 (Version 1)
Quarter: 2023Q1

REPORT INFORMATION
  Report Type: Report from Study
  Country: US (occurrence: US)
  Receive Date: 20230228
  Receipt Date: 20230228
  Transmission Date: 20230417
  Serious: Yes (Other)
  Sender: FDA-Public Use
  Company Number: US-ABBVIE-4321388

PATIENT
  Age: 82 Year
  Sex: Female

DRUGS (1)
  1. HUMIRA [Suspect]
     Active Substance: ADALIMUMAB
     Indication: Product used for unknown indication
     Dosage: END DATE: 2012
     Route: 058
     Dates: start: 20120226

REACTIONS (11)
  - Skin wound [Unknown]
  - Fatigue [Unknown]
  - Pain [Unknown]
  - Haemorrhage [Unknown]
  - Urinary tract infection [Unknown]
  - Malaise [Unknown]
  - Muscle spasms [Unknown]
  - Night sweats [Unknown]
  - Injection site inflammation [Unknown]
  - Behcet^s syndrome [Unknown]
  - Rheumatoid arthritis [Unknown]

NARRATIVE: CASE EVENT DATE: 20221201
